FAERS Safety Report 23977168 (Version 1)
Quarter: 2024Q2

REPORT INFORMATION
  Report Type: Spontaneous
  Country: US (occurrence: US)
  Receive Date: 20240614
  Receipt Date: 20240614
  Transmission Date: 20240716
  Serious: Yes (Hospitalization)
  Sender: FDA-Public Use
  Company Number: US-TAKEDA-2024TUS058300

PATIENT

DRUGS (2)
  1. COLCRYS [Suspect]
     Active Substance: COLCHICINE
     Indication: Product used for unknown indication
     Dosage: 0.6 MILLIGRAM
     Route: 065
     Dates: start: 202008
  2. COLCRYS [Suspect]
     Active Substance: COLCHICINE
     Dosage: 2 DOSAGE FORM, QD
     Route: 065

REACTIONS (2)
  - General physical health deterioration [Unknown]
  - Product availability issue [Unknown]
